FAERS Safety Report 8732024 (Version 3)
Quarter: 2012Q4

REPORT INFORMATION
  Report Type: 
  Country: US (occurrence: US)
  Receive Date: 20120820
  Receipt Date: 20121227
  Transmission Date: 20130627
  Serious: Yes (Hospitalization, Other)
  Sender: FDA-Public Use
  Company Number: US-ASTRAZENECA-2012SE56706

PATIENT
  Age: 63 Year
  Sex: Female
  Weight: 71.2 kg

DRUGS (8)
  1. ARIMIDEX [Suspect]
     Route: 048
  2. TOPROL XL [Suspect]
     Route: 048
     Dates: start: 20101013
  3. CRESTOR [Suspect]
     Route: 048
     Dates: start: 20101013
  4. PLAVIX [Concomitant]
  5. SYNTHROID [Concomitant]
  6. VALIUM [Concomitant]
  7. NITROGLYCERIN [Concomitant]
  8. ABSORBINE,JR PATCHES [Concomitant]
     Indication: PAIN PROPHYLAXIS

REACTIONS (15)
  - Breast mass [Recovered/Resolved]
  - Breast cancer [Unknown]
  - Injury [Unknown]
  - Accident [Unknown]
  - Arteriosclerosis [Unknown]
  - Myocardial infarction [Unknown]
  - Breast calcifications [Unknown]
  - Mammogram abnormal [Unknown]
  - Back pain [Unknown]
  - Hypothyroidism [Unknown]
  - Pain [Unknown]
  - Breast swelling [Unknown]
  - Breast induration [Unknown]
  - Angina pectoris [Unknown]
  - Anxiety [Unknown]
